FAERS Safety Report 9463218 (Version 1)
Quarter: 2013Q3

REPORT INFORMATION
  Report Type: Spontaneous
  Country: JP (occurrence: JP)
  Receive Date: 20130818
  Receipt Date: 20130818
  Transmission Date: 20140515
  Serious: Yes (Hospitalization, Other)
  Sender: FDA-Public Use
  Company Number: PHHY2013JP086544

PATIENT
  Age: 43 Year
  Sex: Female

DRUGS (8)
  1. TEGRETOL [Suspect]
     Indication: SCHIZOPHRENIA
     Dosage: 800 MG, DAILY
     Route: 048
     Dates: end: 20130430
  2. TEGRETOL [Interacting]
     Dosage: 800 MG, DAILY
     Route: 048
     Dates: start: 20130502
  3. CLARITHROMYCIN [Interacting]
     Dosage: UNK UKN, UNK
     Route: 048
  4. NEULEPTIL [Concomitant]
     Dosage: UNK UKN, UNK
     Route: 048
  5. KLARICID [Concomitant]
     Dosage: UNK UKN, UNK
     Route: 048
  6. HUSTAZOL [Concomitant]
     Dosage: UNK UKN, UNK
     Route: 048
  7. PREDONINE [Concomitant]
     Dosage: UNK UKN, UNK
  8. MUCOSTA [Concomitant]
     Dosage: UNK UKN, UNK

REACTIONS (5)
  - Toxicity to various agents [Recovered/Resolved]
  - Drug interaction [Recovered/Resolved]
  - Fall [Unknown]
  - Joint dislocation [Unknown]
  - Altered state of consciousness [Recovered/Resolved]
